FAERS Safety Report 7771457-3 (Version None)
Quarter: 2011Q3

REPORT INFORMATION
  Report Type: 
  Country: None (occurrence: None)
  Receive Date: 20110922
  Receipt Date: 20100920
  Transmission Date: 20111222
  Serious: No
  Sender: FDA-Public Use
  Company Number: US-ASTRAZENECA-2010SE43179

PATIENT
  Age: 55 Year
  Sex: Male

DRUGS (3)
  1. KLONOPIN [Concomitant]
  2. SEROQUEL XR [Suspect]
     Indication: DEPRESSION
     Route: 048
  3. SEROQUEL XR [Suspect]
     Route: 048

REACTIONS (11)
  - NERVOUSNESS [None]
  - MALAISE [None]
  - IMPAIRED WORK ABILITY [None]
  - SOMNOLENCE [None]
  - DIARRHOEA [None]
  - FEELING ABNORMAL [None]
  - INCORRECT DOSE ADMINISTERED [None]
  - DISORIENTATION [None]
  - ASTHENIA [None]
  - DIZZINESS [None]
  - DRUG DOSE OMISSION [None]
